FAERS Safety Report 5116207-4 (Version None)
Quarter: 2006Q3

REPORT INFORMATION
  Report Type: 
  Country: None (occurrence: None)
  Receive Date: 20060927
  Receipt Date: 20060922
  Transmission Date: 20061208
  Serious: Yes (Other)
  Sender: FDA-Public Use
  Company Number: US-GLAXOSMITHKLINE-A0621130A

PATIENT
  Age: 51 Year
  Sex: Male

DRUGS (4)
  1. NICORETTE [Suspect]
     Dosage: 2MG SEE DOSAGE TEXT
     Route: 002
  2. PRAVACHOL [Concomitant]
  3. ZESTRIL [Concomitant]
  4. NEXIUM [Concomitant]

REACTIONS (8)
  - AGGRESSION [None]
  - ANTISOCIAL PERSONALITY DISORDER [None]
  - DEPRESSION [None]
  - DRUG WITHDRAWAL SYNDROME [None]
  - DYSGEUSIA [None]
  - INTENTIONAL DRUG MISUSE [None]
  - NICOTINE DEPENDENCE [None]
  - PHARMACEUTICAL PRODUCT COMPLAINT [None]
